FAERS Safety Report 6240711-9 (Version None)
Quarter: 2009Q2

REPORT INFORMATION
  Report Type: 
  Country: None (occurrence: None)
  Receive Date: 20090623
  Receipt Date: 20090217
  Transmission Date: 20091009
  Serious: No
  Sender: FDA-Public Use
  Company Number: US-ASTRAZENECA-2009UW04511

PATIENT
  Age: 82 Year
  Sex: Female
  Weight: 47.6 kg

DRUGS (1)
  1. PULMICORT FLEXHALER [Suspect]
     Indication: LUNG DISORDER
     Dosage: 180 MCG
     Route: 055
     Dates: start: 20090216, end: 20090217

REACTIONS (4)
  - COUGH [None]
  - DYSPNOEA [None]
  - EYE IRRITATION [None]
  - NASAL DISCOMFORT [None]
